FAERS Safety Report 10431093 (Version 1)
Quarter: 2014Q3

REPORT INFORMATION
  Report Type: Spontaneous
  Country: DE (occurrence: DE)
  Receive Date: 20140904
  Receipt Date: 20140904
  Transmission Date: 20150326
  Serious: Yes (Hospitalization, Other)
  Sender: FDA-Public Use
  Company Number: DE-PFIZER INC-2014242028

PATIENT
  Age: 42 Year
  Sex: Female
  Weight: 65 kg

DRUGS (7)
  1. CLEXANE [Concomitant]
     Active Substance: ENOXAPARIN SODIUM
     Indication: THROMBOSIS
     Dosage: 40 MG, DAILY
     Route: 058
     Dates: start: 20121118, end: 20130628
  2. FAMPYRA RETARD [Suspect]
     Active Substance: DALFAMPRIDINE
     Indication: MULTIPLE SCLEROSIS
     Dosage: 10 MG, DAILY
     Route: 048
     Dates: start: 20121118, end: 20121210
  3. REMERGIL [Suspect]
     Active Substance: MIRTAZAPINE
     Indication: DEPRESSION
     Dosage: 30 MG, DAILY
     Route: 048
     Dates: start: 20130226, end: 20130628
  4. GABAPENTIN. [Suspect]
     Active Substance: GABAPENTIN
     Indication: MULTIPLE SCLEROSIS
     Dosage: 3200 MG, DAILY
     Route: 048
     Dates: start: 20121118
  5. GABAPENTIN. [Suspect]
     Active Substance: GABAPENTIN
     Dosage: FROM GW 14+2: 1200 MG, DAILY
     Route: 048
  6. TYSABRI [Suspect]
     Active Substance: NATALIZUMAB
     Indication: MULTIPLE SCLEROSIS
     Dosage: UNK
     Route: 042
     Dates: start: 20121118, end: 20121206
  7. ASPIRIN. [Concomitant]
     Active Substance: ASPIRIN
     Indication: THROMBOSIS PROPHYLAXIS
     Dosage: 100 MG, DAILY
     Route: 048
     Dates: start: 20130412, end: 20130628

REACTIONS (4)
  - Premature labour [Unknown]
  - Foetal growth restriction [Unknown]
  - Exposure during pregnancy [None]
  - Depression [Unknown]
